FAERS Safety Report 9606106 (Version 1)
Quarter: 2013Q4

REPORT INFORMATION
  Report Type: Spontaneous
  Country: US (occurrence: US)
  Receive Date: 20131008
  Receipt Date: 20131008
  Transmission Date: 20140711
  Serious: No
  Sender: FDA-Public Use
  Company Number: US-AMGEN-USASP2013042991

PATIENT
  Age: 73 Year
  Sex: Female

DRUGS (2)
  1. PROLIA [Suspect]
     Indication: PRODUCT USED FOR UNKNOWN INDICATION
     Dosage: UNK
     Dates: start: 201301
  2. VITAMIN D                          /00107901/ [Concomitant]

REACTIONS (2)
  - Rash macular [Recovered/Resolved]
  - Arthralgia [Recovered/Resolved]
